FAERS Safety Report 25897207 (Version 2)
Quarter: 2025Q4

REPORT INFORMATION
  Report Type: Spontaneous
  Country: US (occurrence: US)
  Receive Date: 20251008
  Receipt Date: 20251124
  Transmission Date: 20260118
  Serious: No
  Sender: SANDOZ
  Company Number: US-SANDOZ-SDZ2025US072928

PATIENT

DRUGS (1)
  1. ALBUTEROL SULFATE [Suspect]
     Active Substance: ALBUTEROL SULFATE
     Indication: Product used for unknown indication
     Dosage: UNK; STRENGTH: 90 MCG INHALER
     Route: 055

REACTIONS (4)
  - Circumstance or information capable of leading to device use error [Unknown]
  - Device defective [Unknown]
  - Device delivery system issue [Unknown]
  - Product packaging quantity issue [Unknown]
